FAERS Safety Report 19655838 (Version 1)
Quarter: 2021Q3

REPORT INFORMATION
  Report Type: Spontaneous
  Country: US (occurrence: US)
  Receive Date: 20210804
  Receipt Date: 20210804
  Transmission Date: 20211014
  Serious: Yes (Death, Other)
  Sender: FDA-Public Use
  Company Number: US-009507513-0910USA01112

PATIENT
  Age: 6 Year
  Sex: Male
  Weight: 22.7 kg

DRUGS (19)
  1. DOBUTAMINE [Concomitant]
     Active Substance: DOBUTAMINE HYDROCHLORIDE
  2. RIFAMPICIN [Concomitant]
     Active Substance: RIFAMPIN
     Dosage: 240 MG, UNK
     Route: 042
     Dates: start: 20090828, end: 20090905
  3. SYNTHROID [Concomitant]
     Active Substance: LEVOTHYROXINE SODIUM
     Indication: PRODUCT USED FOR UNKNOWN INDICATION
     Dosage: 50 ?G, Q24H
     Route: 048
     Dates: start: 20090906, end: 20090914
  4. CYTARABINE. [Concomitant]
     Active Substance: CYTARABINE
     Indication: ACUTE MYELOID LEUKAEMIA
     Dosage: 90 MILLIGRAM, UNK
     Route: 042
     Dates: start: 20090807, end: 20090814
  5. DOPAMINE HYDROCHLORIDE. [Concomitant]
     Active Substance: DOPAMINE HYDROCHLORIDE
  6. LASIX [Concomitant]
     Active Substance: FUROSEMIDE
     Dosage: 25 MG, Q8H
     Route: 042
     Dates: start: 20090902, end: 20090917
  7. MEROPENEM. [Concomitant]
     Active Substance: MEROPENEM
     Indication: ANTIBIOTIC PROPHYLAXIS
  8. FLAGYL [Concomitant]
     Active Substance: METRONIDAZOLE\METRONIDAZOLE HYDROCHLORIDE
     Indication: ANTIBIOTIC PROPHYLAXIS
     Dosage: 165 MG, Q6H
     Route: 042
     Dates: start: 20090823, end: 20090905
  9. MILRINONE [Concomitant]
     Active Substance: MILRINONE
     Indication: CARDIAC FAILURE
     Dosage: 0.75 MICROGRAM PER KILOGRAM, UNK
     Route: 042
     Dates: start: 20090903, end: 20090905
  10. IDARUBICIN HYDROCHLORIDE. [Suspect]
     Active Substance: IDARUBICIN HYDROCHLORIDE
     Indication: ACUTE MYELOID LEUKAEMIA
     Dosage: 11 MILLIGRAM, Q24H
     Route: 042
     Dates: start: 20090807, end: 20090809
  11. GENTAMICIN. [Concomitant]
     Active Substance: GENTAMICIN
     Indication: ENTEROCOCCAL INFECTION
     Dosage: 60 MG, Q8H
     Route: 042
     Dates: start: 20090823, end: 20090903
  12. AMPHOTERICIN B. [Concomitant]
     Active Substance: AMPHOTERICIN B
     Indication: PROPHYLAXIS
     Dosage: 73 MILLIGRAM, Q24H
     Route: 042
     Dates: start: 20090825, end: 20090917
  13. CEFEPIME [Concomitant]
     Active Substance: CEFEPIME HYDROCHLORIDE
     Indication: PROPHYLAXIS
     Dosage: 1150 MG, Q8H
     Route: 042
     Dates: start: 20090805, end: 20090823
  14. DIURIL [CHLOROTHIAZIDE] [Concomitant]
  15. CUBICIN [Suspect]
     Active Substance: DAPTOMYCIN
     Indication: ENTEROCOCCAL INFECTION
     Dosage: 146 MILLIGRAM(6MG/KG), Q24H
     Route: 042
     Dates: start: 20090828, end: 20090905
  16. VELCADE [Suspect]
     Active Substance: BORTEZOMIB
     Indication: ACUTE MYELOID LEUKAEMIA
     Dosage: 1.2 GRAM, UNK
     Route: 042
     Dates: start: 20090807, end: 20090814
  17. POTASSIUM CHLORIDE. [Concomitant]
     Active Substance: POTASSIUM CHLORIDE
  18. TIGECYCLINE. [Suspect]
     Active Substance: TIGECYCLINE
     Indication: ENTEROCOCCAL INFECTION
     Dosage: 25 MILLIGRAM, Q24H
     Dates: start: 20090905, end: 20090911
  19. LASIX [Concomitant]
     Active Substance: FUROSEMIDE
     Indication: PULMONARY OEDEMA
     Dosage: 5 MG, Q6H
     Route: 042
     Dates: start: 20090902, end: 20090917

REACTIONS (7)
  - Tachycardia [Fatal]
  - Electrocardiogram QT prolonged [Fatal]
  - Myocarditis [Fatal]
  - Left ventricular dysfunction [Fatal]
  - Cardiogenic shock [Fatal]
  - Right ventricular dysfunction [Fatal]
  - Cor pulmonale [Fatal]

NARRATIVE: CASE EVENT DATE: 20090902
